FAERS Safety Report 18617205 (Version 1)
Quarter: 2020Q4

REPORT INFORMATION
  Report Type: Spontaneous
  Country: US (occurrence: US)
  Receive Date: 20201214
  Receipt Date: 20201214
  Transmission Date: 20210114
  Serious: Yes (Death)
  Sender: FDA-Public Use
  Company Number: None

PATIENT
  Age: 69 Year
  Sex: Male
  Weight: 60.33 kg

DRUGS (2)
  1. BAMLAN IV | MAB [Concomitant]
     Dates: start: 20201202, end: 20201202
  2. BAMLANIVIMAB. [Suspect]
     Active Substance: BAMLANIVIMAB

REACTIONS (2)
  - Intentional product use issue [None]
  - Unresponsive to stimuli [None]

NARRATIVE: CASE EVENT DATE: 20201202
